FAERS Safety Report 7439603-9 (Version None)
Quarter: 2011Q2

REPORT INFORMATION
  Report Type: 
  Country: None (occurrence: None)
  Receive Date: 20110427
  Receipt Date: 20101109
  Transmission Date: 20111010
  Serious: Yes (Hospitalization, Other)
  Sender: FDA-Public Use
  Company Number: US-BAYER-201038020NA

PATIENT
  Age: 30 Year
  Sex: Female
  Weight: 70 kg

DRUGS (15)
  1. NEURONTIN [Concomitant]
     Dosage: 300 MG, BID
  2. YASMIN [Suspect]
     Indication: CONTRACEPTION
  3. CREON [AMYLASE,LIPASE,PANCREATIN,PROTEASE] [Concomitant]
     Dosage: UNK
  4. NEXIUM [Concomitant]
     Dosage: 40 MG, BID
  5. LASIX [Concomitant]
     Dosage: 40 MG, BID
  6. YAZ [Suspect]
     Indication: CONTRACEPTION
  7. YASMIN [Suspect]
     Indication: ACNE
     Dosage: UNK
     Dates: start: 20030101, end: 20080201
  8. DROSPIRENONE AND ETHINYL ESTRADIOL [Suspect]
     Indication: ACNE
  9. PREDNISONE [Concomitant]
     Dosage: 5 MG, QD
  10. CELLCEPT [Concomitant]
     Dosage: 1 MG, BID
  11. CARAFATE [Concomitant]
  12. YAZ [Suspect]
     Indication: ACNE
     Dosage: UNK
     Dates: start: 20080801, end: 20081001
  13. PROGRAF [Concomitant]
     Dosage: 3 MG, BID
  14. PROTONIX [Concomitant]
     Dosage: 30 MG, QD
  15. BENADRYL ALLERGY/COLD [Concomitant]
     Dosage: 10 MG, BID

REACTIONS (3)
  - INJURY [None]
  - DEPRESSION [None]
  - PULMONARY EMBOLISM [None]
